FAERS Safety Report 7127415-5 (Version None)
Quarter: 2010Q4

REPORT INFORMATION
  Report Type: 
  Country: None (occurrence: None)
  Receive Date: 20101129
  Receipt Date: 20091210
  Transmission Date: 20110411
  Serious: No
  Sender: FDA-Public Use
  Company Number: US-PFIZER INC-2009274210

PATIENT
  Sex: Female

DRUGS (2)
  1. REVATIO [Suspect]
     Indication: PULMONARY HYPERTENSION
     Dosage: UNK
  2. WARFARIN [Interacting]
     Dosage: UNK

REACTIONS (3)
  - DRUG DOSE OMISSION [None]
  - DRUG INTERACTION [None]
  - PHYSICAL PRODUCT LABEL ISSUE [None]
